FAERS Safety Report 8017724 (Version 2)
Quarter: 2013Q1

REPORT INFORMATION
  Report Type: Spontaneous
  Country: MX (occurrence: MX)
  Receive Date: 20110630
  Receipt Date: 20130326
  Transmission Date: 20140127
  Serious: Yes (Death)
  Sender: FDA-Public Use
  Company Number: PHHY2011MX56522

PATIENT
  Age: 71 Year
  Sex: Female

DRUGS (1)
  1. CO-DIOVAN [Suspect]
     Indication: HYPERTENSION
     Dosage: 1 DF (160 MG VALS /25 MG HYDRO) DAILY
     Route: 048

REACTIONS (3)
  - Diabetic complication [Fatal]
  - Cardio-respiratory arrest [Fatal]
  - Blood pressure inadequately controlled [Unknown]
